FAERS Safety Report 5804248-0 (Version None)
Quarter: 2008Q3

REPORT INFORMATION
  Report Type: 
  Country: None (occurrence: None)
  Receive Date: 20080709
  Receipt Date: 20080707
  Transmission Date: 20090109
  Serious: Yes (Other)
  Sender: FDA-Public Use
  Company Number: US-ASTRAZENECA-2008UW09086

PATIENT
  Age: 499 Month
  Sex: Female
  Weight: 53.6 kg

DRUGS (5)
  1. SEROQUEL [Suspect]
     Indication: BIPOLAR II DISORDER
     Dosage: 200-400 MG DAILY
     Route: 048
     Dates: start: 20061016, end: 20080327
  2. ATIVAN [Concomitant]
     Indication: ANXIETY
     Route: 048
  3. SERTRALINE [Concomitant]
     Indication: DEPRESSION
     Route: 048
     Dates: start: 20071101
  4. TRAZODONE HCL [Concomitant]
     Indication: INSOMNIA
     Route: 048
     Dates: start: 20060918, end: 20071101
  5. LAMICTAL [Concomitant]
     Indication: DEPRESSION
     Route: 048
     Dates: start: 20060801

REACTIONS (8)
  - BLOOD TRIGLYCERIDES INCREASED [None]
  - BULIMIA NERVOSA [None]
  - CLUMSINESS [None]
  - DEPRESSION [None]
  - HYPERPHAGIA [None]
  - HYPERTENSION [None]
  - JOINT SPRAIN [None]
  - WEIGHT INCREASED [None]
